FAERS Safety Report 13085884 (Version 1)
Quarter: 2017Q1

REPORT INFORMATION
  Report Type: Report from Study
  Country: BR (occurrence: BR)
  Receive Date: 20170104
  Receipt Date: 20170104
  Transmission Date: 20170428
  Serious: Yes (Hospitalization, Other)
  Sender: FDA-Public Use
  Company Number: BR-BRISTOL-MYERS SQUIBB COMPANY-BMS-2016-111287

PATIENT
  Sex: Female

DRUGS (1)
  1. ABATACEPT [Suspect]
     Active Substance: ABATACEPT
     Indication: RHEUMATOID ARTHRITIS
     Dosage: UNK, QMO
     Route: 042

REACTIONS (6)
  - Limb injury [Recovering/Resolving]
  - Peripheral swelling [Recovered/Resolved]
  - Pulmonary thrombosis [Recovered/Resolved]
  - Back pain [Recovered/Resolved]
  - Wound infection [Recovering/Resolving]
  - Thrombosis [Recovering/Resolving]
